FAERS Safety Report 8440683-2 (Version None)
Quarter: 2012Q2

REPORT INFORMATION
  Report Type: 
  Country: None (occurrence: None)
  Receive Date: 20120615
  Receipt Date: 20120606
  Transmission Date: 20120825
  Serious: No
  Sender: FDA-Public Use
  Company Number: US-TEVA-341851USA

PATIENT
  Sex: Male

DRUGS (1)
  1. NUVIGIL [Suspect]
     Indication: NARCOLEPSY
     Route: 048
     Dates: start: 20120402, end: 20120412

REACTIONS (4)
  - PYREXIA [None]
  - CONSTIPATION [None]
  - MALAISE [None]
  - ABDOMINAL DISCOMFORT [None]
